FAERS Safety Report 8988299 (Version 7)
Quarter: 2013Q4

REPORT INFORMATION
  Report Type: Spontaneous
  Country: US (occurrence: US)
  Receive Date: 20121227
  Receipt Date: 20131115
  Transmission Date: 20140711
  Serious: Yes (Other)
  Sender: FDA-Public Use
  Company Number: US-009507513-1212USA010314

PATIENT
  Age: 62 Year
  Sex: Female

DRUGS (4)
  1. PEG-INTRON [Suspect]
     Indication: HEPATITIS C
     Dosage: REDIPEN
     Dates: start: 20121207, end: 20130811
  2. PEG-INTRON [Suspect]
     Dosage: REDIPEN
     Dates: start: 20120712
  3. REBETOL [Suspect]
     Indication: HEPATITIS C
     Dosage: UNK
     Route: 048
     Dates: start: 20121207, end: 20130811
  4. REBETOL [Suspect]
     Dosage: UNK
     Route: 048
     Dates: start: 20120712

REACTIONS (12)
  - Hypoacusis [Unknown]
  - Disturbance in attention [Unknown]
  - Memory impairment [Unknown]
  - Malaise [Unknown]
  - Leukopenia [Unknown]
  - Leukopenia [Unknown]
  - Leukopenia [Unknown]
  - White blood cell count decreased [Unknown]
  - White blood cell count decreased [Unknown]
  - Myalgia [Unknown]
  - White blood cell count decreased [Unknown]
  - Asthenia [Unknown]
